FAERS Safety Report 4409771-1 (Version None)
Quarter: 2004Q3

REPORT INFORMATION
  Report Type: 
  Country: None (occurrence: None)
  Receive Date: 20040723
  Receipt Date: 20040708
  Transmission Date: 20050211
  Serious: Yes (Hospitalization)
  Sender: FDA-Public Use
  Company Number: US-SHR-03-014538

PATIENT
  Sex: Female

DRUGS (2)
  1. CLIMARA [Suspect]
     Indication: HORMONE REPLACEMENT THERAPY
     Dosage: 0.1 MG/D, CONT, TRANSDERMAL;
     Dates: start: 20011101, end: 20030101
  2. CLIMARA [Suspect]
     Indication: HORMONE REPLACEMENT THERAPY
     Dosage: 0.1 MG/D, CONT, TRANSDERMAL;
     Dates: start: 20030101, end: 20030901

REACTIONS (2)
  - TEMPORAL LOBE EPILEPSY [None]
  - THERAPY NON-RESPONDER [None]
